FAERS Safety Report 4828280-9 (Version None)
Quarter: 2005Q4

REPORT INFORMATION
  Report Type: 
  Country: None (occurrence: None)
  Receive Date: 20051115
  Receipt Date: 20050510
  Transmission Date: 20060501
  Serious: No
  Sender: FDA-Public Use
  Company Number: US-BRISTOL-MYERS SQUIBB COMPANY-12962999

PATIENT
  Age: 32 Year
  Sex: Male

DRUGS (2)
  1. SUSTIVA [Suspect]
     Indication: HIV INFECTION
     Route: 048
     Dates: start: 20050301, end: 20050506
  2. TRUVADA [Concomitant]
     Dates: start: 20050502, end: 20050508

REACTIONS (1)
  - NEUTROPENIA [None]
